FAERS Safety Report 24371280 (Version 1)
Quarter: 2024Q3

REPORT INFORMATION
  Report Type: Spontaneous
  Country: US (occurrence: US)
  Receive Date: 20240927
  Receipt Date: 20240927
  Transmission Date: 20241017
  Serious: No
  Sender: LAVIPHARM
  Company Number: US-Lavipharm SA-2162140

PATIENT
  Age: 69 Year
  Sex: Female

DRUGS (1)
  1. CLONIDINE [Suspect]
     Active Substance: CLONIDINE
     Indication: Blood pressure increased

REACTIONS (2)
  - Therapy partial responder [Unknown]
  - Fall [Unknown]
